APPROVED DRUG PRODUCT: METOCLOPRAMIDE INTENSOL
Active Ingredient: METOCLOPRAMIDE HYDROCHLORIDE
Strength: EQ 10MG BASE/ML
Dosage Form/Route: CONCENTRATE;ORAL
Application: A072995 | Product #001
Applicant: ROXANE LABORATORIES INC
Approved: Jan 30, 1992 | RLD: No | RS: No | Type: DISCN